FAERS Safety Report 9325230 (Version 1)
Quarter: 2013Q2

REPORT INFORMATION
  Report Type: Spontaneous
  Country: US (occurrence: US)
  Receive Date: 20130604
  Receipt Date: 20130604
  Transmission Date: 20140414
  Serious: No
  Sender: FDA-Public Use
  Company Number: US-B.I. PHARMACEUTICALS,INC./RIDGEFIELD-2013-BI-15364BP

PATIENT
  Age: 87 Year
  Sex: Male

DRUGS (18)
  1. COMBIVENT [Suspect]
     Indication: CHRONIC OBSTRUCTIVE PULMONARY DISEASE
     Dosage: STRENGTH: 18 MCG / 103 MCG; DAILY DOSE: 144 MCG/ 824 MCG
     Route: 055
     Dates: start: 2005
  2. HYDRALYZINE [Concomitant]
     Indication: CARDIAC FAILURE CONGESTIVE
     Dosage: 37.5 MG
     Route: 048
  3. ISOSORBIDE [Concomitant]
     Dosage: 60 MG
     Route: 048
  4. LEVOTHYROXINE [Concomitant]
     Dosage: 50 MCG
     Route: 048
  5. ALLOPURINOL [Concomitant]
     Indication: BLOOD URIC ACID INCREASED
     Dosage: 150 MG
     Route: 048
  6. ERGOCALCIFEROL [Concomitant]
     Route: 048
  7. SYMBICORT [Concomitant]
     Route: 055
  8. METOPROLOL [Concomitant]
     Dosage: 100 MG
     Route: 048
  9. FUROSEMIDE [Concomitant]
     Dosage: 80 MG
     Route: 048
  10. OMEPRAZOLE [Concomitant]
     Route: 048
  11. CYANOCOBALAMIN [Concomitant]
     Route: 048
  12. ATORVASTATIN [Concomitant]
     Indication: BLOOD CHOLESTEROL INCREASED
     Dosage: 40 MG
     Route: 048
  13. ZETIA [Concomitant]
     Dosage: 5 MG
     Route: 048
  14. LANTUS INSULIN [Concomitant]
     Indication: DIABETES MELLITUS
     Dosage: 22 U
     Route: 058
  15. NOVOLOG [Concomitant]
     Dosage: FORMULATION: SUBCUTANEOUS
     Route: 058
  16. TAMSULOSIN [Concomitant]
     Dosage: 0.4 MG
     Route: 048
  17. WARFARIN [Concomitant]
     Dosage: 2 MG
     Route: 048
  18. CALCITRIOL [Concomitant]
     Dosage: 25 MG
     Route: 048

REACTIONS (5)
  - Nausea [Not Recovered/Not Resolved]
  - Dysgeusia [Not Recovered/Not Resolved]
  - Feeling cold [Not Recovered/Not Resolved]
  - Asthenia [Not Recovered/Not Resolved]
  - Decreased appetite [Not Recovered/Not Resolved]
